FAERS Safety Report 6850972-0 (Version None)
Quarter: 2010Q3

REPORT INFORMATION
  Report Type: 
  Country: None (occurrence: None)
  Receive Date: 20100716
  Receipt Date: 20071023
  Transmission Date: 20110219
  Serious: No
  Sender: FDA-Public Use
  Company Number: US-PFIZER INC-2007090874

PATIENT
  Sex: Female

DRUGS (3)
  1. CHANTIX [Suspect]
  2. ANTIBIOTICS [Concomitant]
  3. PREDNISONE [Concomitant]

REACTIONS (3)
  - DIARRHOEA [None]
  - NAUSEA [None]
  - URTICARIA [None]
